FAERS Safety Report 21596182 (Version 1)
Quarter: 2022Q4

REPORT INFORMATION
  Report Type: Spontaneous
  Country: US (occurrence: US)
  Receive Date: 20221115
  Receipt Date: 20221115
  Transmission Date: 20230113
  Serious: Yes (Other)
  Sender: FDA-Public Use
  Company Number: US-BRISTOL-MYERS SQUIBB COMPANY-2022-135610

PATIENT
  Age: 77 Year
  Sex: Female
  Weight: 83.91 kg

DRUGS (4)
  1. POMALYST [Suspect]
     Active Substance: POMALIDOMIDE
     Indication: Plasma cell myeloma
     Route: 048
     Dates: start: 20201007
  2. BORTEZOMIB [Concomitant]
     Active Substance: BORTEZOMIB
  3. ZOLEDRONIC ACID [Concomitant]
     Active Substance: ZOLEDRONIC ACID
  4. ERYTHROPOIETIN [Concomitant]
     Active Substance: ERYTHROPOIETIN

REACTIONS (3)
  - Neutropenia [Recovering/Resolving]
  - Anaemia [Recovering/Resolving]
  - Thrombocytopenia [Recovering/Resolving]

NARRATIVE: CASE EVENT DATE: 20221109
